FAERS Safety Report 7110471-8 (Version None)
Quarter: 2010Q4

REPORT INFORMATION
  Report Type: 
  Country: None (occurrence: None)
  Receive Date: 20101118
  Receipt Date: 20101104
  Transmission Date: 20110411
  Serious: Yes (Hospitalization)
  Sender: FDA-Public Use
  Company Number: FR-CELGENEUS-056-C5013-10090648

PATIENT
  Sex: Male
  Weight: 56.2 kg

DRUGS (22)
  1. THALIDOMIDE [Suspect]
     Indication: MULTIPLE MYELOMA
     Route: 048
     Dates: start: 20100414
  2. THALIDOMIDE [Suspect]
     Route: 048
     Dates: start: 20100830, end: 20100902
  3. THALIDOMIDE [Suspect]
     Route: 048
     Dates: start: 20100915
  4. MELPHALAN HYDROCHLORIDE [Suspect]
     Indication: MULTIPLE MYELOMA
     Route: 065
     Dates: start: 20100414
  5. MELPHALAN HYDROCHLORIDE [Suspect]
     Route: 065
     Dates: start: 20100830, end: 20100902
  6. PREDNISONE [Suspect]
     Indication: MULTIPLE MYELOMA
     Route: 065
     Dates: start: 20100414
  7. PREDNISONE [Suspect]
     Route: 065
     Dates: start: 20100830, end: 20100902
  8. ASPERGIC [Concomitant]
     Indication: THROMBOSIS PROPHYLAXIS
     Route: 048
     Dates: start: 20100414, end: 20100909
  9. ASPERGIC [Concomitant]
     Route: 048
     Dates: start: 20100910
  10. OXYCONTIN LP [Concomitant]
     Route: 048
     Dates: start: 20100702, end: 20100820
  11. OXYCONTIN LP [Concomitant]
     Route: 048
     Dates: start: 20100909, end: 20100909
  12. OXYCONTIN LP [Concomitant]
     Route: 048
     Dates: start: 20100910, end: 20100910
  13. OXYCONTIN LP [Concomitant]
     Route: 048
     Dates: start: 20100911, end: 20100911
  14. OXYCONTIN LP [Concomitant]
     Route: 048
     Dates: start: 20100911, end: 20100912
  15. OXYCONTIN LP [Concomitant]
     Route: 048
     Dates: start: 20100913, end: 20100913
  16. OXYCONTIN LP [Concomitant]
     Route: 048
     Dates: start: 20100913, end: 20100913
  17. OXYCONTIN LP [Concomitant]
     Route: 048
     Dates: start: 20100914, end: 20100915
  18. OXYCONTIN LP [Concomitant]
     Route: 048
     Dates: start: 20100916
  19. CONTALAX [Concomitant]
     Indication: CONSTIPATION
     Route: 048
     Dates: start: 20100702, end: 20100908
  20. DURAGESIC-100 [Concomitant]
     Route: 062
     Dates: start: 20100821, end: 20100908
  21. TERCIAN [Concomitant]
     Route: 048
     Dates: start: 20100702, end: 20100719
  22. TERCIAN [Concomitant]
     Dosage: 25+50MG/DAY
     Route: 048
     Dates: start: 20100909

REACTIONS (4)
  - GENERAL PHYSICAL HEALTH DETERIORATION [None]
  - OROPHARYNGEAL CANDIDIASIS [None]
  - VOMITING [None]
  - WEIGHT DECREASED [None]
